FAERS Safety Report 19051019 (Version 1)
Quarter: 2021Q1

REPORT INFORMATION
  Report Type: Spontaneous
  Country: US (occurrence: US)
  Receive Date: 20210323
  Receipt Date: 20210323
  Transmission Date: 20210420
  Serious: No
  Sender: FDA-Public Use
  Company Number: None

PATIENT
  Age: 61 Year
  Sex: Female

DRUGS (1)
  1. OPSUMIT [Suspect]
     Active Substance: MACITENTAN
     Indication: PULMONARY HYPERTENSION
     Route: 048
     Dates: start: 20170105, end: 20210316

REACTIONS (3)
  - Pulmonary arterial wedge pressure increased [None]
  - Diastolic dysfunction [None]
  - Cardiac output increased [None]

NARRATIVE: CASE EVENT DATE: 20210316
